FAERS Safety Report 10075780 (Version 1)
Quarter: 2014Q2

REPORT INFORMATION
  Report Type: Spontaneous
  Country: AU (occurrence: AU)
  Receive Date: 20140414
  Receipt Date: 20140414
  Transmission Date: 20141212
  Serious: Yes (Other)
  Sender: FDA-Public Use
  Company Number: AU-ELI_LILLY_AND_COMPANY-AU201404001734

PATIENT
  Age: 35 Year
  Sex: Female

DRUGS (5)
  1. HUMALOG LISPRO [Suspect]
     Indication: DIABETES MELLITUS
     Dosage: 62 U, QD
     Route: 058
     Dates: start: 19961113
  2. HUMULIN NPH [Suspect]
     Indication: DIABETES MELLITUS
     Dosage: 1 DF, QD
     Route: 042
  3. HYDRALAZINE HYDROCHLORIDE [Suspect]
     Indication: ESSENTIAL HYPERTENSION
     Dosage: 75 MG, QD
     Route: 065
  4. OXPRENOLOL HYDROCHLORIDE [Suspect]
     Indication: ESSENTIAL HYPERTENSION
     Dosage: 240 MG, QD
     Route: 065
  5. THYROXINE SODIUM [Suspect]
     Indication: MYXOEDEMA
     Dosage: 300 UG, QD
     Route: 065

REACTIONS (1)
  - Maternal exposure during pregnancy [Recovered/Resolved]
